FAERS Safety Report 18865294 (Version 1)
Quarter: 2021Q1

REPORT INFORMATION
  Report Type: Spontaneous
  Country: CA (occurrence: CA)
  Receive Date: 20210208
  Receipt Date: 20210208
  Transmission Date: 20210420
  Serious: Yes (Other)
  Sender: FDA-Public Use
  Company Number: CA-HLS-202107008

PATIENT
  Age: 33 Year
  Sex: Male

DRUGS (2)
  1. CLOZARIL [Suspect]
     Active Substance: CLOZAPINE
     Indication: PRODUCT USED FOR UNKNOWN INDICATION
     Route: 065
  2. ESCITALOPRAM [Concomitant]
     Active Substance: ESCITALOPRAM OXALATE
     Route: 065

REACTIONS (15)
  - Angiogram [Unknown]
  - Dizziness [Unknown]
  - Balance disorder [Unknown]
  - Asthenia [Unknown]
  - Platelet count decreased [Unknown]
  - Pyrexia [Unknown]
  - Right ventricular failure [Unknown]
  - Tachycardia [Unknown]
  - Left ventricular failure [Unknown]
  - Systolic dysfunction [Unknown]
  - Troponin increased [Unknown]
  - SARS-CoV-2 test [Unknown]
  - Sedation [Unknown]
  - C-reactive protein increased [Unknown]
  - Eosinophil count increased [Unknown]
